FAERS Safety Report 6549928-7 (Version None)
Quarter: 2010Q1

REPORT INFORMATION
  Report Type: 
  Country: None (occurrence: None)
  Receive Date: 20100125
  Receipt Date: 20091007
  Transmission Date: 20100710
  Serious: No
  Sender: FDA-Public Use
  Company Number: US-BAYER-201010524BCC

PATIENT
  Age: 39 Year
  Sex: Female
  Weight: 53 kg

DRUGS (2)
  1. RID LICE KILLING SHAMPOO [Suspect]
     Indication: LICE INFESTATION
     Dosage: CONSUMER LEFT THE SHAMPOO IN HER HAIR FOR ABOUT 40 MINS
     Route: 061
     Dates: start: 20090928
  2. YAZ [Suspect]
     Indication: CONTRACEPTION
     Route: 048
     Dates: start: 20091003

REACTIONS (1)
  - ALOPECIA [None]
